FAERS Safety Report 23439026 (Version 1)
Quarter: 2024Q1

REPORT INFORMATION
  Report Type: Spontaneous
  Country: US (occurrence: None)
  Receive Date: 20240124
  Receipt Date: 20240124
  Transmission Date: 20240409
  Serious: Yes (Other)
  Sender: FDA-Public Use
  Company Number: None

PATIENT
  Age: 25 Year
  Sex: Male
  Weight: 85.5 kg

DRUGS (5)
  1. VTAMA [Suspect]
     Active Substance: TAPINAROF
     Indication: Autoimmune disorder
     Dosage: OTHER QUANTITY : 60 GRAMS;?FREQUENCY : DAILY;?
     Route: 061
     Dates: start: 20231024, end: 20231231
  2. VTAMA [Suspect]
     Active Substance: TAPINAROF
     Indication: Psoriasis
  3. DESLORATADINE [Concomitant]
     Active Substance: DESLORATADINE
  4. RYALTRIS [Concomitant]
     Active Substance: MOMETASONE FUROATE MONOHYDRATE\OLOPATADINE HYDROCHLORIDE
  5. HYDROXYZINE [Concomitant]
     Active Substance: HYDROXYZINE HYDROCHLORIDE

REACTIONS (4)
  - Headache [None]
  - Application site inflammation [None]
  - Folliculitis [None]
  - Therapy cessation [None]

NARRATIVE: CASE EVENT DATE: 20231212
